FAERS Safety Report 18880266 (Version 1)
Quarter: 2021Q1

REPORT INFORMATION
  Report Type: Spontaneous
  Country: US (occurrence: US)
  Receive Date: 20210211
  Receipt Date: 20210211
  Transmission Date: 20210420
  Serious: No
  Sender: FDA-Public Use
  Company Number: US-CURIUM-1999000094

PATIENT
  Age: 35 Year
  Sex: Female

DRUGS (3)
  1. PERTECHNETATE SODIUM (99MTC) [Suspect]
     Active Substance: TECHNETIUM TC-99M SODIUM PERTECHNETATE
     Indication: MULTIPLE GATED ACQUISITION SCAN
     Route: 042
     Dates: start: 19990601, end: 19990601
  2. HEPARIN [Suspect]
     Active Substance: HEPARIN SODIUM
     Indication: MULTIPLE GATED ACQUISITION SCAN
     Dosage: 50 UNITS OF HEPARIN USED FOR KIT PREPARATION
     Dates: start: 19990601, end: 19990601
  3. ULTRATAG RBC [Suspect]
     Active Substance: TECHNETIUM TC-99M RED BLOOD CELLS
     Indication: MULTIPLE GATED ACQUISITION SCAN
     Route: 042
     Dates: start: 19990601, end: 19990601

REACTIONS (2)
  - Feeling hot [Recovered/Resolved]
  - Erythema [Recovered/Resolved]

NARRATIVE: CASE EVENT DATE: 19990601
